FAERS Safety Report 14823111 (Version 2)
Quarter: 2018Q3

REPORT INFORMATION
  Report Type: Report from Study
  Country: US (occurrence: US)
  Receive Date: 20180427
  Receipt Date: 20180830
  Transmission Date: 20181010
  Serious: No
  Sender: FDA-Public Use
  Company Number: PHHY2017US088391

PATIENT
  Age: 38 Year
  Sex: Female

DRUGS (4)
  1. FLEXERIL [Concomitant]
     Active Substance: CYCLOBENZAPRINE HYDROCHLORIDE
     Indication: PAIN
     Dosage: UNK
     Route: 065
     Dates: start: 20180330
  2. GILENYA [Suspect]
     Active Substance: FINGOLIMOD HYDROCHLORIDE
     Indication: MULTIPLE SCLEROSIS
     Dosage: UNK, QD
     Route: 048
  3. IBUPROFEN. [Concomitant]
     Active Substance: IBUPROFEN
     Indication: PAIN
     Dosage: UNK
     Route: 005
     Dates: start: 20180330
  4. VALIUM [Concomitant]
     Active Substance: DIAZEPAM
     Indication: PAIN
     Dosage: UNK
     Route: 065
     Dates: start: 20180330, end: 20180330

REACTIONS (19)
  - Dizziness [Recovered/Resolved]
  - Decreased appetite [Unknown]
  - Lymphocyte count decreased [Unknown]
  - Hepatitis B surface antibody positive [Unknown]
  - Musculoskeletal pain [Unknown]
  - Stress [Unknown]
  - Fatigue [Recovered/Resolved]
  - Muscle spasms [Unknown]
  - Musculoskeletal stiffness [Unknown]
  - Depression [Unknown]
  - Abdominal pain [Recovered/Resolved]
  - Mood altered [Unknown]
  - Muscle spasticity [Unknown]
  - White blood cell count decreased [Unknown]
  - Fall [Recovered/Resolved]
  - Tooth injury [Unknown]
  - Headache [Unknown]
  - Back pain [Unknown]
  - Gait spastic [Unknown]

NARRATIVE: CASE EVENT DATE: 20170324
